FAERS Safety Report 5278050-5 (Version None)
Quarter: 2007Q1

REPORT INFORMATION
  Report Type: 
  Country: None (occurrence: None)
  Receive Date: 20070327
  Receipt Date: 20070320
  Transmission Date: 20070707
  Serious: Yes (Other)
  Sender: FDA-Public Use
  Company Number: US-ELI_LILLY_AND_COMPANY-US200703004053

PATIENT
  Sex: Female

DRUGS (2)
  1. HUMALOG [Suspect]
     Indication: DIABETES MELLITUS
     Dosage: UNK, UNKNOWN
     Dates: start: 19970101
  2. INSULIN [Concomitant]
     Dosage: UNK, UNKNOWN

REACTIONS (9)
  - AMNESIA [None]
  - ANGER [None]
  - BLOOD GLUCOSE DECREASED [None]
  - CONVULSION [None]
  - DYSKINESIA [None]
  - FRUSTRATION [None]
  - HYPERHIDROSIS [None]
  - INCOHERENT [None]
  - TEMPORAL LOBE EPILEPSY [None]
